FAERS Safety Report 23619166 (Version 2)
Quarter: 2024Q2

REPORT INFORMATION
  Report Type: Spontaneous
  Country: US (occurrence: US)
  Receive Date: 20240311
  Receipt Date: 20240418
  Transmission Date: 20240716
  Serious: No
  Sender: FDA-Public Use
  Company Number: US-VIIV HEALTHCARE LIMITED-US2024025641

PATIENT
  Age: 32 Year
  Sex: Female

DRUGS (2)
  1. RILPIVIRINE [Suspect]
     Active Substance: RILPIVIRINE
     Indication: HIV infection
     Dosage: UNK,600-900 MG DOSING KIT
     Route: 065
     Dates: start: 20230823, end: 20240131
  2. CABOTEGRAVIR [Suspect]
     Active Substance: CABOTEGRAVIR
     Indication: HIV infection
     Dosage: UNK,600-900 MG DOSING KIT
     Route: 065
     Dates: start: 20230823, end: 20240131

REACTIONS (2)
  - Viral load increased [Unknown]
  - Hepatitis B virus test positive [Unknown]

NARRATIVE: CASE EVENT DATE: 20240131
